FAERS Safety Report 10154690 (Version 2)
Quarter: 2014Q2

REPORT INFORMATION
  Report Type: Spontaneous
  Country: US (occurrence: US)
  Receive Date: 20140506
  Receipt Date: 20140603
  Transmission Date: 20141212
  Serious: Yes (Other)
  Sender: FDA-Public Use
  Company Number: US-ELI_LILLY_AND_COMPANY-US201404009009

PATIENT
  Age: 34 Year
  Sex: Female
  Weight: 110 kg

DRUGS (2)
  1. INSULIN HUMAN [Suspect]
     Indication: TYPE 1 DIABETES MELLITUS
     Dosage: 40 U, QD
     Route: 058
     Dates: start: 20140325
  2. INSULIN HUMAN [Suspect]
     Dosage: 200 U, QD
     Route: 058
     Dates: start: 20140325

REACTIONS (7)
  - Diabetic retinopathy [Unknown]
  - Visual impairment [Unknown]
  - Feeling abnormal [Unknown]
  - Blood glucose increased [Unknown]
  - Drug ineffective [Unknown]
  - Wrong technique in drug usage process [Unknown]
  - Glycosylated haemoglobin increased [Unknown]
